FAERS Safety Report 5797605-2 (Version None)
Quarter: 2008Q3

REPORT INFORMATION
  Report Type: 
  Country: None (occurrence: None)
  Receive Date: 20080702
  Receipt Date: 20080606
  Transmission Date: 20090109
  Serious: No
  Sender: FDA-Public Use
  Company Number: US-BAYER-200825164NA

PATIENT
  Age: 65 Year
  Sex: Female

DRUGS (3)
  1. ULTRAVIST 300 [Suspect]
     Indication: COMPUTERISED TOMOGRAM ABDOMEN
     Dosage: TOTAL DAILY DOSE: 100 ML  UNIT DOSE: 100 ML
     Route: 042
     Dates: start: 20080606, end: 20080606
  2. READI-CAT 2 [Concomitant]
     Indication: COMPUTERISED TOMOGRAM ABDOMEN
     Route: 048
     Dates: start: 20080605, end: 20080605
  3. READI-CAT 2 [Concomitant]
     Route: 048
     Dates: start: 20080606, end: 20080606

REACTIONS (4)
  - ERYTHEMA [None]
  - FLUSHING [None]
  - HOT FLUSH [None]
  - URTICARIA [None]
